FAERS Safety Report 12785112 (Version 3)
Quarter: 2016Q4

REPORT INFORMATION
  Report Type: Spontaneous
  Country: US (occurrence: US)
  Receive Date: 20160927
  Receipt Date: 20161209
  Transmission Date: 20170207
  Serious: Yes (Hospitalization, Other)
  Sender: FDA-Public Use
  Company Number: US-BRISTOL-MYERS SQUIBB COMPANY-BMS-2016-078090

PATIENT
  Sex: Female

DRUGS (5)
  1. OPDIVO [Suspect]
     Active Substance: NIVOLUMAB
     Indication: NON-SMALL CELL LUNG CANCER
     Dosage: 220 MG, Q2WK
     Route: 065
     Dates: start: 20160412, end: 20160831
  2. OXYCODONE [Concomitant]
     Active Substance: OXYCODONE
     Indication: PAIN
     Dosage: 5 MG, TID
     Route: 065
  3. TYLENOL [Concomitant]
     Active Substance: ACETAMINOPHEN
     Indication: PRODUCT USED FOR UNKNOWN INDICATION
     Dosage: UNK
     Route: 065
  4. ALBUTEROL                          /00139501/ [Concomitant]
     Active Substance: ALBUTEROL
     Indication: PRODUCT USED FOR UNKNOWN INDICATION
     Route: 065
  5. XANAX [Concomitant]
     Active Substance: ALPRAZOLAM
     Indication: ANXIETY
     Dosage: UNK
     Route: 065

REACTIONS (14)
  - Feeling abnormal [Unknown]
  - Pneumonia [Recovering/Resolving]
  - Peripheral swelling [Unknown]
  - Limb injury [Unknown]
  - Arthralgia [Not Recovered/Not Resolved]
  - Gait disturbance [Unknown]
  - Heart rate irregular [Unknown]
  - Dysphonia [Unknown]
  - Cardiac pacemaker insertion [Unknown]
  - Joint swelling [Not Recovered/Not Resolved]
  - Headache [Unknown]
  - Psoriasis [Not Recovered/Not Resolved]
  - Myalgia [Not Recovered/Not Resolved]
  - Cough [Not Recovered/Not Resolved]
